FAERS Safety Report 16146632 (Version 1)
Quarter: 2019Q2

REPORT INFORMATION
  Report Type: Spontaneous
  Country: PT (occurrence: PT)
  Receive Date: 20190402
  Receipt Date: 20190402
  Transmission Date: 20190711
  Serious: Yes (Other)
  Sender: FDA-Public Use
  Company Number: PT-TEVA-2019-PT-1031776

PATIENT
  Age: 58 Year
  Sex: Male

DRUGS (5)
  1. OMEPRAZOLE. [Concomitant]
     Active Substance: OMEPRAZOLE
  2. DICLOFENAC [Suspect]
     Active Substance: DICLOFENAC
     Route: 065
     Dates: start: 201411
  3. TRIFLUSAL [Concomitant]
     Active Substance: TRIFLUSAL
     Dosage: 600 MILLIGRAM DAILY;
     Route: 048
  4. BISOPROLOL [Concomitant]
     Active Substance: BISOPROLOL
  5. RYTMONORM [Concomitant]
     Active Substance: PROPAFENONE
     Route: 048

REACTIONS (1)
  - Eyelid oedema [Recovered/Resolved]

NARRATIVE: CASE EVENT DATE: 201411
